FAERS Safety Report 5461940-8 (Version None)
Quarter: 2007Q3

REPORT INFORMATION
  Report Type: 
  Country: None (occurrence: None)
  Receive Date: 20070920
  Receipt Date: 20070116
  Transmission Date: 20080115
  Serious: No
  Sender: FDA-Public Use
  Company Number: A0635598A

PATIENT
  Age: 20 Year
  Sex: Male

DRUGS (1)
  1. ABREVA [Suspect]
     Dates: start: 20070109, end: 20070109

REACTIONS (2)
  - LIP SWELLING [None]
  - SWELLING FACE [None]
